FAERS Safety Report 12825308 (Version 1)
Quarter: 2016Q4

REPORT INFORMATION
  Report Type: Spontaneous
  Country: US (occurrence: US)
  Receive Date: 20161007
  Receipt Date: 20161007
  Transmission Date: 20170207
  Serious: No
  Sender: FDA-Public Use
  Company Number: US-UNICHEM LABORATORIES LIMITED-UCM201606-000127

PATIENT
  Sex: Female

DRUGS (2)
  1. CLONIDINE HCL [Suspect]
     Active Substance: CLONIDINE HYDROCHLORIDE
     Indication: HYPERTENSION
  2. CLONIDINE PATCH [Suspect]
     Active Substance: CLONIDINE
     Indication: HYPERTENSION

REACTIONS (6)
  - Eye swelling [Unknown]
  - Pain [Unknown]
  - Muscle twitching [Unknown]
  - Pain in extremity [Unknown]
  - Back pain [Unknown]
  - Rash [Unknown]
